FAERS Safety Report 8182786-6 (Version None)
Quarter: 2012Q1

REPORT INFORMATION
  Report Type: 
  Country: None (occurrence: None)
  Receive Date: 20120305
  Receipt Date: 20120221
  Transmission Date: 20120608
  Serious: Yes (Hospitalization, Other)
  Sender: FDA-Public Use
  Company Number: US-CELGENEUS-163-21880-11123650

PATIENT
  Sex: Male
  Weight: 90.8 kg

DRUGS (25)
  1. ASPIRIN [Concomitant]
     Route: 065
  2. ACETAMINOPHEN [Concomitant]
     Indication: PAIN
     Dosage: 10 GRAM
     Route: 065
  3. VYTORIN [Concomitant]
     Dosage: 10/40
     Route: 065
  4. MOBIC [Concomitant]
     Dosage: 7.5 MILLIGRAM
     Route: 065
  5. PERCOCET [Concomitant]
     Indication: MIGRAINE
     Dosage: 10/325
     Route: 065
  6. LASIX [Concomitant]
     Dosage: 20 MILLIGRAM
     Route: 065
  7. PROZAC [Concomitant]
     Dosage: 20 MILLIGRAM
     Route: 065
  8. OMEPRAZOLE [Concomitant]
     Dosage: 20 MILLIGRAM
     Route: 065
  9. DEXAMETHASONE [Concomitant]
     Route: 065
  10. ALLEGRA [Concomitant]
     Route: 065
  11. IMITREX [Concomitant]
     Indication: MIGRAINE
  12. AMITRIPTYLINE HCL [Concomitant]
     Dosage: 100 MILLIGRAM
     Route: 065
  13. ZOMIG [Concomitant]
     Indication: MIGRAINE
     Dosage: 5 MILLIGRAM
     Route: 065
  14. PRILOSEC [Concomitant]
     Route: 065
  15. COUMADIN [Concomitant]
     Route: 065
  16. LASIX [Concomitant]
     Route: 065
     Dates: start: 20111201, end: 20111201
  17. ALBUTEROL [Concomitant]
     Dosage: 2 PUFFS
     Route: 065
  18. HEPARIN [Concomitant]
     Route: 065
  19. REVLIMID [Suspect]
     Indication: MULTIPLE MYELOMA
     Dosage: 25 MILLIGRAM
     Route: 048
     Dates: start: 20111007
  20. DUONEB [Concomitant]
     Route: 065
  21. NASAREL [Concomitant]
     Dosage: 2 SPRAYS TO EACH NOSTRIL
     Route: 045
  22. LORAZEPAM [Concomitant]
     Dosage: 1 MILLIGRAM
     Route: 065
  23. POTASSIUM CHLORIDE [Concomitant]
     Dosage: 10 MILLIEQUIVALENTS
     Route: 065
  24. METHADON HCL TAB [Concomitant]
     Indication: MIGRAINE
     Dosage: 15 MILLIGRAM
     Route: 065
  25. LYRICA [Concomitant]
     Dosage: 100 MILLIGRAM
     Route: 065

REACTIONS (3)
  - MEDICAL DEVICE COMPLICATION [None]
  - DEEP VEIN THROMBOSIS [None]
  - PULMONARY EMBOLISM [None]
